FAERS Safety Report 4364296-7 (Version None)
Quarter: 2004Q2

REPORT INFORMATION
  Report Type: 
  Country: None (occurrence: None)
  Receive Date: 20040519
  Receipt Date: 20040513
  Transmission Date: 20050107
  Serious: Yes (Hospitalization)
  Sender: FDA-Public Use
  Company Number: 200417879BWH

PATIENT
  Age: 48 Year
  Sex: Male

DRUGS (4)
  1. AVELOX [Suspect]
     Indication: BRONCHITIS
     Dosage: 400 MG, TOTAL DAILY, ORAL
     Route: 048
  2. AVELOX [Suspect]
     Indication: PNEUMONIA
     Dosage: 400 MG, TOTAL DAILY, ORAL
     Route: 048
  3. INSULIN [Concomitant]
  4. PROTONIX [Concomitant]

REACTIONS (2)
  - HYPOGLYCAEMIC COMA [None]
  - TREATMENT NONCOMPLIANCE [None]
